FAERS Safety Report 4831142-4 (Version None)
Quarter: 2005Q4

REPORT INFORMATION
  Report Type: 
  Country: None (occurrence: None)
  Receive Date: 20051114
  Receipt Date: 20051102
  Transmission Date: 20060501
  Serious: Yes (Other)
  Sender: FDA-Public Use
  Company Number: 2005-11-0090

PATIENT
  Age: 55 Year
  Sex: Female

DRUGS (6)
  1. NASOMET (MOMETASONE FUROATE) NASAL SUSPENSION ^LIKE NASONEX^ [Suspect]
     Indication: SINUSITIS
     Dosage: 2 DOSES NASAL SPRAY
     Route: 045
     Dates: start: 20051009, end: 20051009
  2. RISEDRONATE SODIUM TABLETS [Concomitant]
  3. ETORICOXIB TABLETS [Concomitant]
  4. ACETAMINOPHEN [Concomitant]
  5. GLUCOSAMINE SULFATE [Concomitant]
  6. CHRONIC CHLORIDE HEXAHYDRATE [Concomitant]

REACTIONS (4)
  - ERYTHEMA [None]
  - EYELID FUNCTION DISORDER [None]
  - EYELID OEDEMA [None]
  - SWELLING FACE [None]
